FAERS Safety Report 16826503 (Version 3)
Quarter: 2021Q1

REPORT INFORMATION
  Report Type: Spontaneous
  Country: IN (occurrence: IN)
  Receive Date: 20190919
  Receipt Date: 20210106
  Transmission Date: 20210419
  Serious: Yes (Other)
  Sender: FDA-Public Use
  Company Number: IN-PFIZER INC-2019027788

PATIENT
  Age: 75 Year
  Sex: Male

DRUGS (4)
  1. SUTENT [Suspect]
     Active Substance: SUNITINIB MALATE
     Dosage: 25 MG, CYCLIC (2 WEEKS ON 1 WEEK OFF)
     Dates: start: 20201019
  2. SUTENT [Suspect]
     Active Substance: SUNITINIB MALATE
     Dosage: 12.5 MG, CYCLIC (1X/DAY FOR 2 WEEKS ON 1 WEEK OFF)
  3. SUTENT [Suspect]
     Active Substance: SUNITINIB MALATE
     Dosage: 37.5 MG, CYCLIC (1X/DAY FOR 2 WEEKS ON 1 WEEK OFF)
     Route: 048
     Dates: start: 20180815
  4. SUTENT [Suspect]
     Active Substance: SUNITINIB MALATE
     Indication: METASTATIC RENAL CELL CARCINOMA
     Dosage: 50 MG, 1X/DAY
     Route: 048
     Dates: start: 20180810

REACTIONS (4)
  - Fistula discharge [Unknown]
  - Hypertension [Unknown]
  - Renal abscess [Unknown]
  - Hypothyroidism [Unknown]
